FAERS Safety Report 10239831 (Version 1)
Quarter: 2014Q2

REPORT INFORMATION
  Report Type: Spontaneous
  Country: US (occurrence: None)
  Receive Date: 20140612
  Receipt Date: 20140612
  Transmission Date: 20141212
  Serious: Yes (Other)
  Sender: FDA-Public Use
  Company Number: 001745112A

PATIENT
  Age: 17 Year
  Sex: Female

DRUGS (6)
  1. PROACTIV + SKIN SMOOTHING EXFOLIATOR [Suspect]
     Indication: ACNE
     Dosage: TWICE DAILY DERMAL
     Dates: start: 20140413, end: 20140416
  2. PROACTIV + PORE TARGETING TREATMENT [Suspect]
     Indication: ACNE
     Dosage: TWICE DAILY DERMAL
     Dates: start: 20140413, end: 20140416
  3. PROACTIV + EMERGENCY BLEMISH RELIEF [Suspect]
     Indication: ACNE
     Dosage: TWICE DAILY DERMAL
     Dates: start: 20140413, end: 20140416
  4. PROACTIV + SKIN PURIFYING MASK [Suspect]
     Indication: ACNE
     Dosage: TWICE DAILY DERMAL
     Dates: start: 20140413, end: 20140416
  5. PROACTIV + COMPLEXION PERFECTING HYDRATOR [Suspect]
     Indication: ACNE
     Dosage: TWICE DAILY DERMAL
     Dates: start: 20140413, end: 20140416
  6. PROACTIV + CLEANSING BODY BAR [Suspect]
     Indication: ACNE
     Dosage: TWICE DAILY DERMAL
     Dates: start: 20140413, end: 20140416

REACTIONS (3)
  - Swelling face [None]
  - Dysphagia [None]
  - Cough [None]
